FAERS Safety Report 19677942 (Version 2)
Quarter: 2021Q3

REPORT INFORMATION
  Report Type: Spontaneous
  Country: US (occurrence: US)
  Receive Date: 20210810
  Receipt Date: 20210817
  Transmission Date: 20211014
  Serious: No
  Sender: FDA-Public Use
  Company Number: US-AMGEN-USASP2021120597

PATIENT
  Age: 82 Year
  Sex: Female
  Weight: 63.04 kg

DRUGS (1)
  1. ENBREL [Suspect]
     Active Substance: ETANERCEPT
     Indication: RHEUMATOID ARTHRITIS
     Dosage: 25 MILLIGRAM, 2 TIMES/WK
     Route: 065
     Dates: start: 2001

REACTIONS (2)
  - Osteoporosis [Unknown]
  - Product dispensing error [Unknown]

NARRATIVE: CASE EVENT DATE: 20210802
